FAERS Safety Report 24750421 (Version 3)
Quarter: 2025Q3

REPORT INFORMATION
  Report Type: Spontaneous
  Country: US (occurrence: US)
  Receive Date: 20241218
  Receipt Date: 20250725
  Transmission Date: 20251020
  Serious: Yes (Other)
  Sender: PFIZER
  Company Number: US-PFIZER INC-202400327169

PATIENT
  Age: 67 Year
  Sex: Female

DRUGS (1)
  1. XELJANZ XR [Suspect]
     Active Substance: TOFACITINIB CITRATE
     Dosage: TAKE 11 MG TABLET ORAL DAILY
     Route: 048
     Dates: start: 201504

REACTIONS (11)
  - Rotator cuff repair [Recovered/Resolved]
  - Femur fracture [Unknown]
  - Pain [Not Recovered/Not Resolved]
  - Hand deformity [Unknown]
  - Limb deformity [Unknown]
  - Finger deformity [Unknown]
  - Malignant melanoma [Recovered/Resolved]
  - Arthritis [Not Recovered/Not Resolved]
  - Sensitivity to weather change [Not Recovered/Not Resolved]
  - COVID-19 [Recovered/Resolved]
  - Influenza [Recovered/Resolved]

NARRATIVE: CASE EVENT DATE: 20230101
